FAERS Safety Report 4300044-4 (Version None)
Quarter: 2004Q1

REPORT INFORMATION
  Report Type: 
  Country: None (occurrence: None)
  Receive Date: 20040219
  Receipt Date: 20040219
  Transmission Date: 20041129
  Serious: Yes (Hospitalization)
  Sender: FDA-Public Use
  Company Number: None

PATIENT
  Age: 74 Year
  Sex: Male

DRUGS (7)
  1. DILANTIN [Suspect]
     Indication: CONVULSION
     Dosage: 2 PO QHS
     Route: 048
  2. FELODIPINE [Concomitant]
  3. GABAPENTIN [Concomitant]
  4. MIRTAZAPINE [Concomitant]
  5. NAPROXEN [Concomitant]
  6. QUETIAPINE [Concomitant]
  7. RANITIDINE [Concomitant]

REACTIONS (4)
  - ASTHENIA [None]
  - CONFUSIONAL STATE [None]
  - DISORIENTATION [None]
  - DRUG TOXICITY [None]
